FAERS Safety Report 4303555-0 (Version None)
Quarter: 2004Q1

REPORT INFORMATION
  Report Type: 
  Country: None (occurrence: None)
  Receive Date: 20040225
  Receipt Date: 20040213
  Transmission Date: 20041129
  Serious: Yes (Other)
  Sender: FDA-Public Use
  Company Number: JP-BRISTOL-MYERS SQUIBB COMPANY-12512430

PATIENT
  Age: 76 Year
  Sex: Male

DRUGS (4)
  1. GATIFLO [Suspect]
     Indication: PNEUMONIA
     Route: 048
     Dates: start: 20040203, end: 20040212
  2. ISCOTIN [Concomitant]
     Route: 048
     Dates: start: 20040114
  3. RIFADIN [Concomitant]
     Route: 048
     Dates: start: 20040114
  4. EBUTOL [Concomitant]
     Route: 048
     Dates: start: 20040114

REACTIONS (1)
  - HYPOGLYCAEMIA [None]
